FAERS Safety Report 16925849 (Version 4)
Quarter: 2020Q4

REPORT INFORMATION
  Report Type: Report from Study
  Country: BR (occurrence: BR)
  Receive Date: 20191016
  Receipt Date: 20201124
  Transmission Date: 20210113
  Serious: Yes (Other)
  Sender: FDA-Public Use
  Company Number: BR-UCBSA-2019042867

PATIENT
  Age: 33 Year
  Sex: Female
  Weight: 60 kg

DRUGS (3)
  1. CERTOLIZUMAB PEGOL CD [Suspect]
     Active Substance: CERTOLIZUMAB PEGOL
     Dosage: 400 MILLIGRAM, EV 30 DAYS
     Route: 058
     Dates: start: 202001
  2. CERTOLIZUMAB PEGOL CD [Suspect]
     Active Substance: CERTOLIZUMAB PEGOL
     Indication: CROHN^S DISEASE
     Dosage: 400 MILLIGRAM, EV 4 WEEKS
     Route: 058
     Dates: start: 201807, end: 2019
  3. CLENIL [BECLOMETASONE DIPROPIONATE] [Concomitant]
     Indication: ASTHMA
     Dosage: 2 APPLICATIONS

REACTIONS (7)
  - Cystitis [Recovered/Resolved]
  - Twin pregnancy [Unknown]
  - Intentional dose omission [Unknown]
  - Therapeutic response decreased [Unknown]
  - Abnormal faeces [Recovering/Resolving]
  - Premature delivery [Unknown]
  - Maternal exposure before pregnancy [Unknown]

NARRATIVE: CASE EVENT DATE: 201807
